FAERS Safety Report 12817985 (Version 1)
Quarter: 2016Q4

REPORT INFORMATION
  Report Type: Spontaneous
  Country: FR (occurrence: FR)
  Receive Date: 20161005
  Receipt Date: 20161005
  Transmission Date: 20170207
  Serious: Yes (Hospitalization, Other)
  Sender: FDA-Public Use
  Company Number: FR-ELI_LILLY_AND_COMPANY-FR201609010531

PATIENT
  Age: 76 Year
  Sex: Female

DRUGS (6)
  1. CYMBALTA [Suspect]
     Active Substance: DULOXETINE HYDROCHLORIDE
     Indication: MAJOR DEPRESSION
     Dosage: 160 MG, BID
     Route: 048
     Dates: start: 20160510, end: 20160801
  2. TERALITHE [Suspect]
     Active Substance: LITHIUM CARBONATE
     Indication: MAJOR DEPRESSION
     Dosage: 600 MG, QD
     Route: 048
     Dates: start: 20160727, end: 20160801
  3. MOVICOL [Concomitant]
     Active Substance: POLYETHYLENE GLYCOL 3350\POTASSIUM CHLORIDE\SODIUM BICARBONATE\SODIUM CHLORIDE
     Dosage: UNK, UNKNOWN
     Route: 065
  4. TEMESTA                            /00273201/ [Concomitant]
     Active Substance: LORAZEPAM
     Dosage: UNK, UNKNOWN
     Route: 065
  5. ABILIFY [Suspect]
     Active Substance: ARIPIPRAZOLE
     Indication: MAJOR DEPRESSION
     Dosage: 5 MG, QD
     Route: 048
     Dates: start: 20160727, end: 20160801
  6. PROPANOLOL                         /00030001/ [Concomitant]
     Active Substance: PROPRANOLOL HYDROCHLORIDE
     Dosage: 40 MG, UNKNOWN
     Route: 065

REACTIONS (8)
  - Body temperature increased [Unknown]
  - Hypertonia [Unknown]
  - Hypophagia [Unknown]
  - Tremor [Unknown]
  - Serotonin syndrome [Recovered/Resolved]
  - Dehydration [Unknown]
  - Prescribed overdose [Unknown]
  - Rhabdomyolysis [Unknown]

NARRATIVE: CASE EVENT DATE: 20160510
